FAERS Safety Report 6815632-0 (Version None)
Quarter: 2010Q3

REPORT INFORMATION
  Report Type: 
  Country: None (occurrence: None)
  Receive Date: 20100702
  Receipt Date: 20100623
  Transmission Date: 20110219
  Serious: Yes (Hospitalization)
  Sender: FDA-Public Use
  Company Number: GB-B.I. PHARMACEUTICALS,INC./RIDGEFIELD-2010-DE-03420GD

PATIENT

DRUGS (3)
  1. NEVIRAPINE [Suspect]
     Indication: HIV INFECTION
  2. ZIAGEN [Suspect]
     Indication: HIV INFECTION
     Dosage: 16 MG/KG
     Route: 048
  3. EPIVIR [Suspect]
     Indication: HIV INFECTION
     Dosage: 8 MG/KG
     Route: 048

REACTIONS (2)
  - RESPIRATORY DISORDER [None]
  - VOMITING [None]
